FAERS Safety Report 16063191 (Version 1)
Quarter: 2019Q1

REPORT INFORMATION
  Report Type: Spontaneous
  Country: US (occurrence: US)
  Receive Date: 20190312
  Receipt Date: 20190312
  Transmission Date: 20190418
  Serious: Yes (Other)
  Sender: FDA-Public Use
  Company Number: US-SA-2019SA064615

PATIENT
  Age: 70 Year
  Sex: Female

DRUGS (3)
  1. DIUREX [FUROSEMIDE] [Concomitant]
     Route: 065
  2. LASIX [Concomitant]
     Active Substance: FUROSEMIDE
     Route: 065
  3. TOUJEO [Suspect]
     Active Substance: INSULIN GLARGINE
     Indication: TYPE 2 DIABETES MELLITUS
     Dosage: 48 U, QD
     Route: 065

REACTIONS (2)
  - Swelling [Unknown]
  - Shoulder operation [Unknown]
